FAERS Safety Report 7115765-8 (Version None)
Quarter: 2010Q4

REPORT INFORMATION
  Report Type: 
  Country: None (occurrence: None)
  Receive Date: 20101122
  Receipt Date: 20101102
  Transmission Date: 20110411
  Serious: Yes (Death)
  Sender: FDA-Public Use
  Company Number: US-AMGEN-USASP2010003905

PATIENT

DRUGS (1)
  1. PROCRIT [Suspect]
     Indication: BLOOD COUNT ABNORMAL
     Dosage: UNK
     Route: 058
     Dates: start: 20100601, end: 20100701

REACTIONS (1)
  - DEATH [None]
